FAERS Safety Report 7934816-1 (Version None)
Quarter: 2011Q4

REPORT INFORMATION
  Report Type: 
  Country: None (occurrence: None)
  Receive Date: 20111122
  Receipt Date: 20111005
  Transmission Date: 20120403
  Serious: No
  Sender: FDA-Public Use
  Company Number: US-PFIZER INC-K201101196

PATIENT

DRUGS (2)
  1. EMBEDA [Suspect]
     Indication: PAIN
     Dosage: 100 MG, 3X/DAY
     Route: 048
     Dates: end: 20110301
  2. EMBEDA [Suspect]
     Indication: SPINAL OPERATION

REACTIONS (1)
  - PAIN [None]
